FAERS Safety Report 5988776-3 (Version None)
Quarter: 2008Q4

REPORT INFORMATION
  Report Type: 
  Country: None (occurrence: None)
  Receive Date: 20081208
  Receipt Date: 20081208
  Transmission Date: 20090506
  Serious: Yes (Disabling)
  Sender: FDA-Public Use
  Company Number: None

PATIENT
  Age: 51 Year
  Sex: Female
  Weight: 90 kg

DRUGS (6)
  1. POSACONAZOLE -NOXAFIL- 40 MG/ML SCHERING-PLOUGH [Suspect]
     Indication: HAEMATOLOGICAL MALIGNANCY
     Dosage: 400 MG Q12H PO
     Route: 048
     Dates: start: 20081113, end: 20081120
  2. POSACONAZOLE -NOXAFIL- 40 MG/ML SCHERING-PLOUGH [Suspect]
     Indication: NEUTROPENIA
     Dosage: 400 MG Q12H PO
     Route: 048
     Dates: start: 20081113, end: 20081120
  3. MEROPENEM [Concomitant]
  4. ESOMEPRAZOLE MAGNESIUM [Concomitant]
  5. NORTRIPTYLINE HCL [Concomitant]
  6. DOCUSATE [Concomitant]

REACTIONS (3)
  - PETECHIAE [None]
  - RASH [None]
  - RASH PRURITIC [None]
